FAERS Safety Report 6596445-4 (Version None)
Quarter: 2010Q1

REPORT INFORMATION
  Report Type: 
  Country: None (occurrence: None)
  Receive Date: 20100223
  Receipt Date: 20100216
  Transmission Date: 20100710
  Serious: Yes (Hospitalization, Disabling)
  Sender: FDA-Public Use
  Company Number: JP-EISAI INC.-E2090-01004-SPO-JP

PATIENT
  Sex: Female

DRUGS (9)
  1. EXCEGRAN [Suspect]
     Dosage: 1.4 GRAM
     Route: 048
     Dates: start: 20090515
  2. ALEVIATIN [Suspect]
     Dosage: 2.3 GRAM
     Route: 065
     Dates: start: 20081222, end: 20091109
  3. ONON [Concomitant]
     Indication: RESPIRATORY TRACT INFECTION
     Dosage: 123 MG DAILY
     Dates: start: 20091104, end: 20091117
  4. ALESION [Concomitant]
     Dosage: 20 G DAILY
     Dates: start: 20091104, end: 20091110
  5. RIVOTRIL [Concomitant]
     Dosage: 0.8 GRAM DAILY
     Dates: start: 20090120
  6. ASTOMIN [Concomitant]
     Indication: RESPIRATORY TRACT INFECTION
     Dosage: 30 MG DAILY
     Dates: start: 20091104, end: 20091118
  7. MUCODYNE [Concomitant]
     Indication: RESPIRATORY TRACT INFECTION
     Dosage: 750 MG DAILY
     Dates: start: 20091104, end: 20091117
  8. MEPTIN-MINI [Concomitant]
     Indication: RESPIRATORY TRACT INFECTION
     Dosage: 50 U DAILY
     Dates: start: 20091104, end: 20091117
  9. CALONAL [Concomitant]
     Dosage: 400 G DAILY
     Dates: start: 20091104

REACTIONS (2)
  - DRUG RASH WITH EOSINOPHILIA AND SYSTEMIC SYMPTOMS [None]
  - TYPE 1 DIABETES MELLITUS [None]
